FAERS Safety Report 15030035 (Version 1)
Quarter: 2018Q2

REPORT INFORMATION
  Report Type: Spontaneous
  Country: DE (occurrence: DE)
  Receive Date: 20180619
  Receipt Date: 20180619
  Transmission Date: 20180711
  Serious: Yes (Other)
  Sender: FDA-Public Use
  Company Number: DE-MYLANLABS-2018M1042796

PATIENT
  Age: 49 Year
  Sex: Male
  Weight: 76 kg

DRUGS (2)
  1. BISOPROLOL [Suspect]
     Active Substance: BISOPROLOL
     Indication: EXTRASYSTOLES
     Dosage: ABENDS 1,25 MG
     Route: 048
     Dates: start: 20170601, end: 20171215
  2. BISOPROLOL [Suspect]
     Active Substance: BISOPROLOL
     Indication: HEART RATE INCREASED

REACTIONS (5)
  - Lethargy [Recovered/Resolved]
  - Apathy [Recovered/Resolved]
  - Disturbance in attention [Recovered/Resolved]
  - Mental impairment [Recovered/Resolved]
  - Indifference [Recovered/Resolved]

NARRATIVE: CASE EVENT DATE: 20170601
